FAERS Safety Report 25029459 (Version 1)
Quarter: 2025Q1

REPORT INFORMATION
  Report Type: Spontaneous
  Country: CN (occurrence: CN)
  Receive Date: 20250303
  Receipt Date: 20250303
  Transmission Date: 20250408
  Serious: Yes (Other)
  Sender: AMGEN
  Company Number: CN-AMGEN-CHNSP2025038337

PATIENT
  Age: 35 Year
  Sex: Female

DRUGS (15)
  1. XGEVA [Suspect]
     Active Substance: DENOSUMAB
     Indication: Breast cancer
     Route: 058
     Dates: start: 20250116, end: 20250123
  2. XGEVA [Suspect]
     Active Substance: DENOSUMAB
     Indication: Pain
  3. XGEVA [Suspect]
     Active Substance: DENOSUMAB
     Indication: Neuralgia
  4. XGEVA [Suspect]
     Active Substance: DENOSUMAB
     Indication: Hyperthyroidism
  5. XGEVA [Suspect]
     Active Substance: DENOSUMAB
     Indication: Bone cancer
  6. HERCEPTIN [Suspect]
     Active Substance: TRASTUZUMAB
     Indication: Breast cancer
     Route: 058
     Dates: start: 20250116, end: 20250123
  7. HERCEPTIN [Suspect]
     Active Substance: TRASTUZUMAB
     Indication: Pain
  8. HERCEPTIN [Suspect]
     Active Substance: TRASTUZUMAB
     Indication: Neuralgia
  9. HERCEPTIN [Suspect]
     Active Substance: TRASTUZUMAB
     Indication: Hyperthyroidism
  10. HERCEPTIN [Suspect]
     Active Substance: TRASTUZUMAB
     Indication: Bone cancer
  11. GOSERELIN ACETATE [Suspect]
     Active Substance: GOSERELIN ACETATE
     Indication: Breast cancer
     Route: 058
     Dates: start: 20240116, end: 20250123
  12. GOSERELIN ACETATE [Suspect]
     Active Substance: GOSERELIN ACETATE
     Indication: Bone cancer
  13. GOSERELIN ACETATE [Suspect]
     Active Substance: GOSERELIN ACETATE
     Indication: Neuralgia
  14. GOSERELIN ACETATE [Suspect]
     Active Substance: GOSERELIN ACETATE
     Indication: Hyperthyroidism
  15. GOSERELIN ACETATE [Suspect]
     Active Substance: GOSERELIN ACETATE
     Indication: Pain

REACTIONS (1)
  - Myelosuppression [Unknown]

NARRATIVE: CASE EVENT DATE: 20250126
